FAERS Safety Report 23484147 (Version 2)
Quarter: 2024Q1

REPORT INFORMATION
  Report Type: Spontaneous
  Country: US (occurrence: US)
  Receive Date: 20240206
  Receipt Date: 20240208
  Transmission Date: 20240409
  Serious: No
  Sender: FDA-Public Use
  Company Number: US-ABBVIE-5622945

PATIENT
  Sex: Female

DRUGS (1)
  1. BOTOX [Suspect]
     Active Substance: ONABOTULINUMTOXINA
     Indication: Migraine
     Dosage: TIME INTERVAL: AS NECESSARY: FORM STRENGTH: 200 MILLIGRAM?145 TO 150 UNITS OF BOTOX FROM THE 200 ...
     Route: 030

REACTIONS (2)
  - Injection site pain [Recovered/Resolved]
  - Crying [Unknown]

NARRATIVE: CASE EVENT DATE: 20240201
